FAERS Safety Report 19900202 (Version 1)
Quarter: 2021Q3

REPORT INFORMATION
  Report Type: Spontaneous
  Country: TR (occurrence: TR)
  Receive Date: 20210930
  Receipt Date: 20210930
  Transmission Date: 20211014
  Serious: Yes (Other)
  Sender: FDA-Public Use
  Company Number: TR-ACCORD-239840

PATIENT
  Age: 38 Year
  Sex: Male

DRUGS (4)
  1. MERCAPTOPURINE/MERCAPTOPURINE ANHYDROUS [Suspect]
     Active Substance: MERCAPTOPURINE
     Indication: B-CELL TYPE ACUTE LEUKAEMIA
  2. METHOTREXATE. [Suspect]
     Active Substance: METHOTREXATE
     Indication: B-CELL TYPE ACUTE LEUKAEMIA
     Route: 048
  3. VINCRISTINE [Suspect]
     Active Substance: VINCRISTINE
     Indication: B-CELL TYPE ACUTE LEUKAEMIA
     Dosage: 2 MG ON DAY 1 MONTHLY
  4. PREDNISONE. [Suspect]
     Active Substance: PREDNISONE
     Indication: B-CELL TYPE ACUTE LEUKAEMIA
     Dosage: PDN; 40 MG/M2/D ON DAYS 1?7 MONTHLY

REACTIONS (5)
  - Cytomegalovirus infection reactivation [Recovered/Resolved]
  - Pancytopenia [Recovered/Resolved]
  - Hypertriglyceridaemia [Recovered/Resolved]
  - Diarrhoea [Unknown]
  - Lymphopenia [Recovered/Resolved]
